FAERS Safety Report 6856540-9 (Version None)
Quarter: 2010Q3

REPORT INFORMATION
  Report Type: 
  Country: None (occurrence: None)
  Receive Date: 20100719
  Receipt Date: 20100709
  Transmission Date: 20110219
  Serious: Yes (Hospitalization)
  Sender: FDA-Public Use
  Company Number: DE-ROCHE-714166

PATIENT
  Sex: Male
  Weight: 87 kg

DRUGS (5)
  1. BEVACIZUMAB [Suspect]
     Indication: METASTATIC RENAL CELL CARCINOMA
     Dosage: FREQUENCY: ONCE ON 24 JUNE 2010.
     Route: 042
     Dates: start: 20100624
  2. TEMSIROLIMUS [Suspect]
     Indication: METASTATIC RENAL CELL CARCINOMA
     Dosage: FREQUENCY: ONCE ON 24 JUNE 2010.
     Route: 042
     Dates: start: 20100624
  3. METOPROLOL SUCCINATE [Concomitant]
     Indication: CORONARY ARTERY DISEASE
     Dates: start: 19870101
  4. CLOPIDOGREL [Concomitant]
     Indication: CORONARY ARTERY DISEASE
     Dates: start: 20090101
  5. ISOSORBIDE DINITRATE [Concomitant]
     Indication: CORONARY ARTERY DISEASE
     Dates: start: 19870101

REACTIONS (1)
  - CORONARY ARTERY DISEASE [None]
